FAERS Safety Report 16654105 (Version 2)
Quarter: 2020Q2

REPORT INFORMATION
  Report Type: Spontaneous
  Country: US (occurrence: US)
  Receive Date: 20190731
  Receipt Date: 20200626
  Transmission Date: 20200713
  Serious: No
  Sender: FDA-Public Use
  Company Number: US-SA-2019SA202870

PATIENT

DRUGS (2)
  1. DUPIXENT [Suspect]
     Active Substance: DUPILUMAB
     Indication: DERMATITIS ALLERGIC
     Dosage: 300 MG, QOW
     Route: 058
     Dates: start: 20190711
  2. DUPIXENT [Suspect]
     Active Substance: DUPILUMAB
     Indication: DERMATITIS ATOPIC

REACTIONS (6)
  - Condition aggravated [Unknown]
  - Eye discharge [Unknown]
  - Burning sensation [Recovering/Resolving]
  - Conjunctivitis [Unknown]
  - Feeling hot [Unknown]
  - Visual impairment [Unknown]

NARRATIVE: CASE EVENT DATE: 201907
